FAERS Safety Report 8470278-6 (Version None)
Quarter: 2012Q2

REPORT INFORMATION
  Report Type: 
  Country: None (occurrence: None)
  Receive Date: 20120621
  Receipt Date: 20120621
  Transmission Date: 20120825
  Serious: No
  Sender: FDA-Public Use
  Company Number: None

PATIENT
  Age: 6 Year
  Sex: Male
  Weight: 22.68 kg

DRUGS (4)
  1. ZYRTEC [Concomitant]
  2. SINGULAIR [Suspect]
     Indication: ASTHMA
     Dosage: 5 MG PO
     Route: 048
  3. SINGULAIR [Suspect]
     Indication: HYPERSENSITIVITY
     Dosage: 5 MG PO
     Route: 048
  4. PROVENTYL [Concomitant]

REACTIONS (1)
  - NIGHTMARE [None]
